FAERS Safety Report 7206501-5 (Version None)
Quarter: 2011Q1

REPORT INFORMATION
  Report Type: 
  Country: None (occurrence: None)
  Receive Date: 20110103
  Receipt Date: 20101223
  Transmission Date: 20110831
  Serious: Yes (Hospitalization)
  Sender: FDA-Public Use
  Company Number: DK-ASTRAZENECA-2010SE60747

PATIENT
  Age: 59 Year
  Sex: Male

DRUGS (4)
  1. EFFEXOR [Suspect]
     Route: 065
  2. ANTABUSE [Suspect]
     Route: 065
  3. SEROQUEL [Suspect]
     Route: 048
  4. LAMOTRIGEN [Suspect]
     Route: 065

REACTIONS (1)
  - ILEUS PARALYTIC [None]
